FAERS Safety Report 25482044 (Version 2)
Quarter: 2025Q3

REPORT INFORMATION
  Report Type: Report from Study
  Country: US (occurrence: US)
  Receive Date: 20250626
  Receipt Date: 20250717
  Transmission Date: 20251021
  Serious: Yes (Other)
  Sender: ABBVIE
  Company Number: US-ABBVIE-6340882

PATIENT
  Age: 74 Year
  Sex: Male
  Weight: 80.739 kg

DRUGS (1)
  1. HUMIRA [Suspect]
     Active Substance: ADALIMUMAB
     Indication: Crohn^s disease
     Dosage: CITRATE FREE
     Route: 058
     Dates: start: 20250101

REACTIONS (4)
  - Intestinal obstruction [Recovered/Resolved]
  - Stomal hernia [Recovered/Resolved]
  - Gastrointestinal inflammation [Unknown]
  - Clostridium difficile infection [Recovered/Resolved]

NARRATIVE: CASE EVENT DATE: 20250427
